FAERS Safety Report 26206912 (Version 1)
Quarter: 2025Q4

REPORT INFORMATION
  Report Type: Report from Study
  Country: EU (occurrence: EU)
  Receive Date: 20251229
  Receipt Date: 20251229
  Transmission Date: 20260117
  Serious: Yes (Life-Threatening, Hospitalization)
  Sender: ADC THERAPEUTICS
  Company Number: EU-BIOVITRUM-2025-DE-017824

PATIENT
  Age: 67 Year
  Sex: Male
  Weight: 60.7 kg

DRUGS (5)
  1. ZYNLONTA [Suspect]
     Active Substance: LONCASTUXIMAB TESIRINE-LPYL
     Indication: Diffuse large B-cell lymphoma
     Dosage: 9300 MICROGRAM/51.86 ML
     Route: 042
     Dates: start: 20251113, end: 20251113
  2. ZYNLONTA [Suspect]
     Active Substance: LONCASTUXIMAB TESIRINE-LPYL
     Dosage: 9105 MICROGRAM/52 ML
     Route: 042
     Dates: start: 20251204, end: 20251204
  3. EPCORITAMAB-BYSP [Suspect]
     Active Substance: EPCORITAMAB-BYSP
     Indication: Diffuse large B-cell lymphoma
     Dosage: 0.16 MG/1.0 ML
     Route: 058
     Dates: start: 20251120, end: 20251120
  4. EPCORITAMAB-BYSP [Suspect]
     Active Substance: EPCORITAMAB-BYSP
     Dosage: 0.8 MG/1.0 ML
     Route: 058
     Dates: start: 20251127, end: 20251127
  5. EPCORITAMAB-BYSP [Suspect]
     Active Substance: EPCORITAMAB-BYSP
     Dosage: 48 MG/0.8 ML
     Route: 058
     Dates: start: 20251204, end: 20251204

REACTIONS (1)
  - Septic shock [Not Recovered/Not Resolved]

NARRATIVE: CASE EVENT DATE: 20251210
